FAERS Safety Report 7338102-2 (Version None)
Quarter: 2011Q1

REPORT INFORMATION
  Report Type: 
  Country: None (occurrence: None)
  Receive Date: 20110210
  Receipt Date: 20101220
  Transmission Date: 20110831
  Serious: No
  Sender: FDA-Public Use
  Company Number: 1000017870

PATIENT
  Age: 34 Year
  Sex: Female

DRUGS (3)
  1. NSAID NOS (NSAID NOS) (NSAID NOS) [Concomitant]
  2. GABAPENTIN (GABAPENTIN) (GABAPENTIN) [Concomitant]
  3. SAVELLA [Suspect]

REACTIONS (1)
  - HYPERHIDROSIS [None]
